FAERS Safety Report 10691616 (Version 5)
Quarter: 2015Q3

REPORT INFORMATION
  Report Type: Spontaneous
  Country: US (occurrence: US)
  Receive Date: 20150105
  Receipt Date: 20150727
  Transmission Date: 20151125
  Serious: Yes (Hospitalization, Other)
  Sender: FDA-Public Use
  Company Number: US-PFIZER INC-2015001641

PATIENT
  Age: 49 Year
  Sex: Female
  Weight: 94 kg

DRUGS (11)
  1. DIAZEPAM. [Interacting]
     Active Substance: DIAZEPAM
     Indication: NERVOUSNESS
     Dosage: 10 MG, 1X/DAY AT BEDTIME
  2. TRAVATAN [Concomitant]
     Active Substance: TRAVOPROST
     Dosage: UNK
  3. DIAZEPAM. [Interacting]
     Active Substance: DIAZEPAM
     Indication: ANXIETY
     Dosage: 4 MG, 1X/DAY AT BEDTIME
  4. DIAZEPAM. [Interacting]
     Active Substance: DIAZEPAM
     Indication: MENTAL DISORDER
  5. PROZAC [Suspect]
     Active Substance: FLUOXETINE HYDROCHLORIDE
     Indication: DEPRESSION
     Dosage: UNK
     Dates: start: 1981
  6. VISTARIL [Interacting]
     Active Substance: HYDROXYZINE PAMOATE
     Indication: SLEEP DISORDER
     Dosage: THREE 50 MG TABLETS AT BEDTIME
     Route: 048
     Dates: start: 2000
  7. EFFEXOR XR [Concomitant]
     Active Substance: VENLAFAXINE HYDROCHLORIDE
     Dosage: UNK
  8. GEODON [Interacting]
     Active Substance: ZIPRASIDONE HYDROCHLORIDE\ZIPRASIDONE MESYLATE
     Dosage: 160 MG, ONCE NIGHTLY
     Dates: start: 1990
  9. NEURONTIN [Concomitant]
     Active Substance: GABAPENTIN
     Dosage: UNK
  10. GEODON [Interacting]
     Active Substance: ZIPRASIDONE HYDROCHLORIDE\ZIPRASIDONE MESYLATE
     Indication: FEAR
     Dosage: 240 MG, ONCE NIGHTLY
     Dates: start: 1990, end: 1990
  11. VISTARIL [Interacting]
     Active Substance: HYDROXYZINE PAMOATE
     Indication: FEELING OF RELAXATION

REACTIONS (21)
  - Diabetes mellitus [Unknown]
  - Muscular weakness [Recovered/Resolved]
  - Somnolence [Unknown]
  - Increased appetite [Unknown]
  - Panic attack [Recovered/Resolved]
  - Diabetes mellitus inadequate control [Unknown]
  - Gastric disorder [Unknown]
  - Thyroid disorder [Unknown]
  - Drug interaction [Not Recovered/Not Resolved]
  - Micturition urgency [Unknown]
  - Hypertension [Unknown]
  - Fear [Not Recovered/Not Resolved]
  - Blindness [Unknown]
  - Arthritis [Unknown]
  - Empyema [Recovered/Resolved]
  - Tracheal disorder [Recovered/Resolved]
  - Weight increased [Recovering/Resolving]
  - Depression [Unknown]
  - Mental disorder [Not Recovered/Not Resolved]
  - Sensory disturbance [Unknown]
  - Drug intolerance [Unknown]

NARRATIVE: CASE EVENT DATE: 1996
